FAERS Safety Report 4290802-7 (Version None)
Quarter: 2004Q1

REPORT INFORMATION
  Report Type: 
  Country: None (occurrence: None)
  Receive Date: 20040209
  Receipt Date: 20040127
  Transmission Date: 20041129
  Serious: Yes (Life-Threatening, Hospitalization)
  Sender: FDA-Public Use
  Company Number: EM2004-0008

PATIENT
  Age: 60 Year

DRUGS (4)
  1. PROLEUKIN [Suspect]
     Indication: RENAL CELL CARCINOMA STAGE UNSPECIFIED
     Dosage: 36 MIU, SUBCUTANEOUS
     Route: 058
     Dates: start: 20301217, end: 20041007
  2. PROLEUKIN [Suspect]
     Indication: RENAL CELL CARCINOMA STAGE UNSPECIFIED
     Dosage: 36 MIU, SUBCUTANEOUS
     Route: 058
     Dates: start: 20040119
  3. ZOFRAN [Concomitant]
  4. PARACETAMOL (PARACETAMOL) [Concomitant]

REACTIONS (7)
  - ADRENOCORTICAL INSUFFICIENCY ACUTE [None]
  - ARRHYTHMIA [None]
  - CIRCULATORY COLLAPSE [None]
  - DEHYDRATION [None]
  - DIARRHOEA [None]
  - PYREXIA [None]
  - VOMITING [None]
